FAERS Safety Report 25562325 (Version 1)
Quarter: 2025Q3

REPORT INFORMATION
  Report Type: Spontaneous
  Country: CN (occurrence: CN)
  Receive Date: 20250716
  Receipt Date: 20250716
  Transmission Date: 20251021
  Serious: Yes (Hospitalization)
  Sender: ROCHE
  Company Number: CN-CHEPLA-2025008382

PATIENT
  Age: 45 Year
  Sex: Female
  Weight: 48 kg

DRUGS (14)
  1. BEVACIZUMAB [Suspect]
     Active Substance: BEVACIZUMAB
     Indication: Rectal cancer
     Dosage: QD; D2-15, AND Q3W REGIME
     Route: 042
     Dates: start: 20250619, end: 20250619
  2. BEVACIZUMAB [Suspect]
     Active Substance: BEVACIZUMAB
     Indication: Colorectal cancer
  3. BEVACIZUMAB [Suspect]
     Active Substance: BEVACIZUMAB
     Indication: Metastases to lung
  4. BEVACIZUMAB [Suspect]
     Active Substance: BEVACIZUMAB
     Indication: Metastases to liver
  5. CAPECITABINE [Suspect]
     Active Substance: CAPECITABINE
     Indication: Rectal cancer
     Dosage: APPROVAL NO. GYZZ H20073024; BID; PO; D2-15, AND Q3W REGIMEN
     Route: 048
     Dates: start: 20250619, end: 20250703
  6. CAPECITABINE [Suspect]
     Active Substance: CAPECITABINE
     Indication: Colorectal cancer
  7. CAPECITABINE [Suspect]
     Active Substance: CAPECITABINE
     Indication: Metastases to lung
  8. CAPECITABINE [Suspect]
     Active Substance: CAPECITABINE
     Indication: Metastases to liver
  9. ELOXATIN [Suspect]
     Active Substance: OXALIPLATIN
     Indication: Rectal cancer
     Dosage: APPROVAL NO. GYZZ J20150117; INTRAVENOUS INFUSION; QD; D2-15, AND Q3W REGIME
     Route: 042
     Dates: start: 20250619, end: 20250619
  10. ELOXATIN [Suspect]
     Active Substance: OXALIPLATIN
     Indication: Colorectal cancer
  11. ELOXATIN [Suspect]
     Active Substance: OXALIPLATIN
     Indication: Metastases to lung
  12. ELOXATIN [Suspect]
     Active Substance: OXALIPLATIN
     Indication: Metastases to liver
  13. SODIUM CHLORIDE [Concomitant]
     Active Substance: SODIUM CHLORIDE
     Indication: Medication dilution
     Dosage: APPROVAL NO. GYZZ H51021157; QD; INTRAVENOUS INFUSION; IVGTT D1
     Route: 042
     Dates: start: 20250619, end: 20250619
  14. DEXTROSE [Concomitant]
     Active Substance: DEXTROSE MONOHYDRATE
     Indication: Medication dilution
     Dosage: APPROVAL NO. GYZZ H51020634; QD; INTRAVENOUS INFUSION; IVGTT D2
     Route: 042
     Dates: start: 20250620, end: 20250620

REACTIONS (1)
  - Drug-induced liver injury [Recovering/Resolving]

NARRATIVE: CASE EVENT DATE: 20250623
